FAERS Safety Report 25785598 (Version 1)
Quarter: 2025Q3

REPORT INFORMATION
  Report Type: Spontaneous
  Country: US (occurrence: US)
  Receive Date: 20250910
  Receipt Date: 20250910
  Transmission Date: 20251021
  Serious: Yes (Death, Other)
  Sender: STRIDES
  Company Number: US-STRIDES ARCOLAB LIMITED-2025SP011444

PATIENT
  Age: 52 Year
  Sex: Male

DRUGS (6)
  1. DISULFIRAM [Suspect]
     Active Substance: DISULFIRAM
     Indication: Choroid melanoma
     Route: 065
  2. NELVUTAMIG [Suspect]
     Active Substance: NELVUTAMIG
     Indication: Choroid melanoma
     Route: 065
  3. TEMODAR [Suspect]
     Active Substance: TEMOZOLOMIDE
     Indication: Choroid melanoma
     Route: 065
  4. PEMBROLIZUMAB [Suspect]
     Active Substance: PEMBROLIZUMAB
     Indication: Choroid melanoma
     Route: 065
  5. ZINC [Suspect]
     Active Substance: ZINC
     Indication: Choroid melanoma
     Route: 065
  6. TRAMETINIB [Concomitant]
     Active Substance: TRAMETINIB
     Indication: Choroid melanoma
     Route: 065

REACTIONS (2)
  - Malignant neoplasm progression [Fatal]
  - Off label use [Unknown]
